FAERS Safety Report 10188947 (Version 1)
Quarter: 2014Q2

REPORT INFORMATION
  Report Type: Spontaneous
  Country: US (occurrence: US)
  Receive Date: 20140522
  Receipt Date: 20140522
  Transmission Date: 20141212
  Serious: Yes (Other)
  Sender: FDA-Public Use
  Company Number: CHPA2014US006880

PATIENT
  Age: 86 Year
  Sex: Female

DRUGS (9)
  1. NODOZ [Suspect]
     Indication: SOMNOLENCE
     Dosage: 0.5 DF, BID
     Route: 048
  2. NODOZ [Suspect]
     Indication: HERNIA
  3. NODOZ [Suspect]
     Indication: OFF LABEL USE
  4. POTASSIUM CHLORIDE [Concomitant]
     Dosage: UNK
  5. MONTELUKAST [Concomitant]
     Indication: HYPERSENSITIVITY
     Dosage: UNK
  6. LASIX [Concomitant]
     Dosage: UNK
  7. TOPROL [Concomitant]
     Dosage: UNK
  8. ADVAIR [Concomitant]
     Dosage: UNK
  9. LEVO T [Concomitant]
     Indication: THYROID DISORDER
     Dosage: UNK

REACTIONS (5)
  - Hiatus hernia [Not Recovered/Not Resolved]
  - Macular degeneration [Not Recovered/Not Resolved]
  - Spinal column stenosis [Not Recovered/Not Resolved]
  - Scoliosis [Not Recovered/Not Resolved]
  - Back disorder [Not Recovered/Not Resolved]
